FAERS Safety Report 24266141 (Version 2)
Quarter: 2024Q3

REPORT INFORMATION
  Report Type: Report from Study
  Country: US (occurrence: US)
  Receive Date: 20240830
  Receipt Date: 20240926
  Transmission Date: 20241016
  Serious: No
  Sender: ACADIA PHARMACEUTICALS
  Company Number: US-ACADIA PHARMACEUTICALS INC.-ACA-2024-PIM-004556

PATIENT
  Sex: Male

DRUGS (5)
  1. NUPLAZID [Suspect]
     Active Substance: PIMAVANSERIN TARTRATE
     Indication: Parkinson^s disease
     Dosage: 34 MILLIGRAM, QD
     Route: 048
     Dates: start: 20230821
  2. GOCOVRI [Concomitant]
     Active Substance: AMANTADINE
     Dosage: 137 MILLIGRAM
  3. PEPCID [Concomitant]
     Active Substance: FAMOTIDINE
     Dosage: 20 MILLIGRAM
  4. CYANOCOBALAMIN [Concomitant]
     Active Substance: CYANOCOBALAMIN
     Dosage: 500 MICROGRAM
  5. VITAMIN D NOS [Concomitant]
     Active Substance: CHOLECALCIFEROL\ERGOCALCIFEROL
     Dosage: 5000UNIT

REACTIONS (1)
  - Livedo reticularis [Not Recovered/Not Resolved]
